FAERS Safety Report 17943872 (Version 44)
Quarter: 2023Q1

REPORT INFORMATION
  Report Type: Spontaneous
  Country: GB (occurrence: GB)
  Receive Date: 20200625
  Receipt Date: 20230222
  Transmission Date: 20230417
  Serious: Yes (Death, Life-Threatening, Hospitalization, Disabling, Congenital Anomaly, Other)
  Sender: FDA-Public Use
  Company Number: GB-SA-2020SA162976

PATIENT
  Age: 56 Year
  Sex: Male
  Weight: 92 kg

DRUGS (154)
  1. TAMSULOSIN HYDROCHLORIDE [Suspect]
     Active Substance: TAMSULOSIN HYDROCHLORIDE
     Indication: Product used for unknown indication
     Dosage: 400 UG
     Route: 065
  2. TAMSULOSIN HYDROCHLORIDE [Suspect]
     Active Substance: TAMSULOSIN HYDROCHLORIDE
     Dosage: 400 MICROGRAM;
  3. TAMSULOSIN HYDROCHLORIDE [Suspect]
     Active Substance: TAMSULOSIN HYDROCHLORIDE
     Dosage: 400 MICROGRAM;
  4. SIMVASTATIN [Suspect]
     Active Substance: SIMVASTATIN
     Indication: Product used for unknown indication
     Dosage: 20 MG
     Route: 048
  5. SIMVASTATIN [Suspect]
     Active Substance: SIMVASTATIN
     Indication: Product used for unknown indication
     Dosage: 400 UG
     Route: 048
  6. SIMVASTATIN [Suspect]
     Active Substance: SIMVASTATIN
     Dosage: 400 UG
     Route: 048
  7. SIMVASTATIN [Suspect]
     Active Substance: SIMVASTATIN
     Dosage: 20 MG
     Route: 048
  8. SIMVASTATIN [Suspect]
     Active Substance: SIMVASTATIN
     Dosage: 20 MILLIGRAM;
     Route: 048
  9. SIMVASTATIN [Suspect]
     Active Substance: SIMVASTATIN
     Dosage: 20 MILLIGRAM;
     Route: 048
  10. FOLIC ACID [Suspect]
     Active Substance: FOLIC ACID
     Dosage: 5 MG QD
     Route: 048
  11. FOLIC ACID [Suspect]
     Active Substance: FOLIC ACID
     Indication: Product used for unknown indication
     Dosage: 5 MG, QD
     Route: 048
  12. FOLIC ACID [Suspect]
     Active Substance: FOLIC ACID
     Indication: Product used for unknown indication
     Dosage: 5 MG, QD
     Route: 048
  13. FOLIC ACID [Suspect]
     Active Substance: FOLIC ACID
     Dosage: 5 MG, QD
     Route: 048
  14. VENLAFAXINE HYDROCHLORIDE [Suspect]
     Active Substance: VENLAFAXINE HYDROCHLORIDE
     Indication: Rheumatoid arthritis
     Dosage: 225 MG, QD
  15. VENLAFAXINE HYDROCHLORIDE [Suspect]
     Active Substance: VENLAFAXINE HYDROCHLORIDE
     Indication: Depression
  16. ZINC [Suspect]
     Active Substance: ZINC
     Dosage: 750 MG, QD
     Route: 065
  17. CIPROFLOXACIN [Suspect]
     Active Substance: CIPROFLOXACIN
     Indication: Abdominal discomfort
     Dosage: 1000 MG, QD
     Dates: start: 20100917
  18. CIPROFLOXACIN [Suspect]
     Active Substance: CIPROFLOXACIN
     Indication: Rheumatoid arthritis
  19. CIPROFLOXACIN [Suspect]
     Active Substance: CIPROFLOXACIN
     Indication: Product used for unknown indication
  20. CIPROFLOXACIN [Suspect]
     Active Substance: CIPROFLOXACIN
     Indication: Depression
  21. DEXAMETHASONE [Suspect]
     Active Substance: DEXAMETHASONE
     Indication: Radiotherapy to pharynx
     Dosage: 8 MG, QD
     Route: 048
     Dates: start: 20200515, end: 202005
  22. DEXAMETHASONE [Suspect]
     Active Substance: DEXAMETHASONE
     Indication: Radiotherapy
     Dosage: 2 MG, QD
     Route: 048
     Dates: start: 20200521, end: 20200528
  23. DEXAMETHASONE [Suspect]
     Active Substance: DEXAMETHASONE
     Indication: Abdominal discomfort
     Dosage: 2 MG, QD (ORAL SOLUTION)
     Route: 048
     Dates: start: 20200521, end: 20200528
  24. DEXAMETHASONE [Suspect]
     Active Substance: DEXAMETHASONE
     Indication: Radiotherapy to pharynx
     Dosage: 2 MG, QD
     Route: 048
     Dates: start: 20200528
  25. DEXAMETHASONE [Suspect]
     Active Substance: DEXAMETHASONE
     Dosage: 10 MG
     Route: 048
     Dates: start: 202005
  26. DEXAMETHASONE [Suspect]
     Active Substance: DEXAMETHASONE
     Dosage: 2 MG, QD
     Route: 048
     Dates: start: 20200521, end: 20200528
  27. DEXAMETHASONE [Suspect]
     Active Substance: DEXAMETHASONE
     Dosage: 8 MG, QD
     Route: 048
     Dates: start: 202005, end: 20200528
  28. DEXAMETHASONE [Suspect]
     Active Substance: DEXAMETHASONE
     Dosage: 8 MG, QD
     Route: 048
     Dates: start: 20200521, end: 202005
  29. DEXAMETHASONE [Suspect]
     Active Substance: DEXAMETHASONE
     Dosage: 10 MG
     Route: 065
  30. DEXAMETHASONE [Suspect]
     Active Substance: DEXAMETHASONE
     Dosage: 8 MG, QD
     Route: 048
  31. DEXAMETHASONE [Suspect]
     Active Substance: DEXAMETHASONE
     Dosage: 8 MG, QD (ORAL SOLUTION)
     Route: 048
     Dates: start: 20200528
  32. DEXAMETHASONE [Suspect]
     Active Substance: DEXAMETHASONE
     Dosage: UNK
     Route: 065
     Dates: start: 202005
  33. DEXAMETHASONE [Suspect]
     Active Substance: DEXAMETHASONE
     Dosage: 2 MG, QD
     Route: 048
     Dates: start: 202005, end: 20200528
  34. DEXAMETHASONE [Suspect]
     Active Substance: DEXAMETHASONE
     Dosage: 2 MG, QD
     Route: 048
  35. DEXAMETHASONE [Suspect]
     Active Substance: DEXAMETHASONE
     Dosage: 10 MG (ORAL SOLUTION) ;
  36. DEXAMETHASONE [Suspect]
     Active Substance: DEXAMETHASONE
     Dosage: 10 MG (ORAL SOLUTION) ;
  37. DEXAMETHASONE [Suspect]
     Active Substance: DEXAMETHASONE
     Dosage: 2 MG, QD
     Route: 048
  38. OMEPRAZOLE [Suspect]
     Active Substance: OMEPRAZOLE
     Indication: Product used for unknown indication
     Dosage: 20 MG
     Route: 048
  39. OMEPRAZOLE [Suspect]
     Active Substance: OMEPRAZOLE
     Indication: Abdominal discomfort
     Dosage: 20 MG, Q12H
     Route: 048
  40. OMEPRAZOLE [Suspect]
     Active Substance: OMEPRAZOLE
     Indication: Product used for unknown indication
     Dosage: 12 MG, BID
     Route: 048
  41. OMEPRAZOLE [Suspect]
     Active Substance: OMEPRAZOLE
     Indication: Gastrooesophageal reflux disease
     Dosage: 400 UG
     Route: 065
  42. OMEPRAZOLE [Suspect]
     Active Substance: OMEPRAZOLE
     Dosage: 20 MG, BID
     Route: 048
  43. OMEPRAZOLE [Suspect]
     Active Substance: OMEPRAZOLE
     Dosage: 40 MG, QD (20 MG, BID)
     Route: 048
  44. OMEPRAZOLE [Suspect]
     Active Substance: OMEPRAZOLE
     Dosage: 20 MG, BID (40MG, QD)
     Route: 048
  45. OMEPRAZOLE [Suspect]
     Active Substance: OMEPRAZOLE
     Dosage: 12 MG, BID
     Route: 048
  46. OMEPRAZOLE [Suspect]
     Active Substance: OMEPRAZOLE
     Dosage: 24 MG, QD
     Route: 003
  47. OMEPRAZOLE [Suspect]
     Active Substance: OMEPRAZOLE
     Dosage: 12 MG
     Route: 048
  48. OMEPRAZOLE [Suspect]
     Active Substance: OMEPRAZOLE
     Dosage: 20 MG
     Route: 048
  49. OMEPRAZOLE [Suspect]
     Active Substance: OMEPRAZOLE
     Dosage: 40 MG, QD
     Route: 065
  50. OMEPRAZOLE [Suspect]
     Active Substance: OMEPRAZOLE
     Dosage: 400 UG
     Route: 065
  51. OMEPRAZOLE [Suspect]
     Active Substance: OMEPRAZOLE
     Dosage: 20 MG
     Route: 048
  52. OMEPRAZOLE [Suspect]
     Active Substance: OMEPRAZOLE
     Dosage: UNK
  53. OMEPRAZOLE [Suspect]
     Active Substance: OMEPRAZOLE
     Dosage: 40 MG(20 MG, BID)
  54. OMEPRAZOLE [Suspect]
     Active Substance: OMEPRAZOLE
     Dosage: 40 MG(20 MG, BID)
  55. OMEPRAZOLE [Suspect]
     Active Substance: OMEPRAZOLE
     Dosage: 40 MG (20 MG, BID)
  56. OMEPRAZOLE [Suspect]
     Active Substance: OMEPRAZOLE
     Dosage: 12 MG, BID
  57. OMEPRAZOLE [Suspect]
     Active Substance: OMEPRAZOLE
     Dosage: 12 MG, BID
  58. OMEPRAZOLE [Suspect]
     Active Substance: OMEPRAZOLE
     Dosage: 400 UG
  59. OMEPRAZOLE [Suspect]
     Active Substance: OMEPRAZOLE
     Dosage: 400 MG;
     Route: 048
  60. OMEPRAZOLE [Suspect]
     Active Substance: OMEPRAZOLE
     Dosage: 20 MG, BID (20 MG, Q12H (20 MG, BID)
     Route: 048
  61. OMEPRAZOLE [Suspect]
     Active Substance: OMEPRAZOLE
     Dosage: 40 MG, QD, (20 MG, BID)
     Route: 048
  62. OMEPRAZOLE [Suspect]
     Active Substance: OMEPRAZOLE
     Dosage: 400 UG ;
  63. OMEPRAZOLE [Suspect]
     Active Substance: OMEPRAZOLE
     Dosage: 24 MG;
  64. OMEPRAZOLE [Suspect]
     Active Substance: OMEPRAZOLE
     Dosage: 40 MG, QD
  65. OMEPRAZOLE [Suspect]
     Active Substance: OMEPRAZOLE
  66. OMEPRAZOLE [Suspect]
     Active Substance: OMEPRAZOLE
     Dosage: 20 MG, BID
     Route: 048
  67. OMEPRAZOLE [Suspect]
     Active Substance: OMEPRAZOLE
     Dosage: 12 MG, BID
     Route: 048
  68. OMEPRAZOLE [Suspect]
     Active Substance: OMEPRAZOLE
     Dosage: 20 MG, BID
     Route: 048
  69. OMEPRAZOLE [Suspect]
     Active Substance: OMEPRAZOLE
     Dosage: 200 MG, QD
     Route: 048
  70. OMEPRAZOLE [Suspect]
     Active Substance: OMEPRAZOLE
     Dosage: 24 MG;
  71. OMEPRAZOLE [Suspect]
     Active Substance: OMEPRAZOLE
     Dosage: 20 MG, BID
     Route: 048
  72. OMEPRAZOLE [Suspect]
     Active Substance: OMEPRAZOLE
     Dosage: 400 MG;
     Route: 048
  73. OMEPRAZOLE [Suspect]
     Active Substance: OMEPRAZOLE
     Dosage: 20 MG, BID (20 MG, Q12H (20 MG, BID)
     Route: 048
  74. OMEPRAZOLE [Suspect]
     Active Substance: OMEPRAZOLE
     Dosage: 400 UG ;
  75. OMEPRAZOLE [Suspect]
     Active Substance: OMEPRAZOLE
     Dosage: 40 MG, QD
  76. OMEPRAZOLE [Suspect]
     Active Substance: OMEPRAZOLE
     Dosage: 20 MG, BID
     Route: 048
  77. OMEPRAZOLE [Suspect]
     Active Substance: OMEPRAZOLE
     Dosage: 12 MG, BID
     Route: 048
  78. OMEPRAZOLE [Suspect]
     Active Substance: OMEPRAZOLE
     Dosage: 40 MG, QD, (20 MG, BID)
     Route: 048
  79. OMEPRAZOLE [Suspect]
     Active Substance: OMEPRAZOLE
     Dosage: 400 UG
  80. CLOZAPINE [Suspect]
     Active Substance: CLOZAPINE
     Indication: Schizophrenia
     Dosage: 400 MG
     Route: 048
     Dates: start: 20090403, end: 202005
  81. CLOZAPINE [Suspect]
     Active Substance: CLOZAPINE
     Indication: Schizophrenia
     Dosage: 400 MG
     Route: 048
     Dates: start: 20200403
  82. CLOZAPINE [Suspect]
     Active Substance: CLOZAPINE
     Dosage: UNK
     Route: 048
     Dates: start: 20200403
  83. CLOZAPINE [Suspect]
     Active Substance: CLOZAPINE
     Dosage: 8 MG, QD
     Route: 048
     Dates: start: 20200521
  84. CLOZAPINE [Suspect]
     Active Substance: CLOZAPINE
     Dosage: UNK
     Route: 048
     Dates: start: 20090403
  85. CLOZAPINE [Suspect]
     Active Substance: CLOZAPINE
     Dosage: 8 MG, QD
     Route: 048
     Dates: start: 20200521
  86. IRBESARTAN [Suspect]
     Active Substance: IRBESARTAN
     Indication: Product used for unknown indication
     Dosage: 150 MG, QD ;
     Route: 048
     Dates: start: 20100912
  87. IRBESARTAN [Suspect]
     Active Substance: IRBESARTAN
     Indication: Abdominal discomfort
     Dosage: 150 MG, QD ;
     Route: 048
     Dates: start: 20100917
  88. AMINOPHYLLINE [Suspect]
     Active Substance: AMINOPHYLLINE
     Indication: Product used for unknown indication
     Dosage: 400 MG, QD
     Dates: start: 20100917
  89. SULFAGUANIDINE [Suspect]
     Active Substance: SULFAGUANIDINE
     Indication: Product used for unknown indication
     Dosage: 750 MG
     Route: 048
  90. CARBOCYSTEINE [Suspect]
     Active Substance: CARBOCYSTEINE
     Indication: Rheumatoid arthritis
     Dosage: 750 MILLIGRAM, ONCE A DAY;
     Route: 048
     Dates: start: 20100917
  91. CARBOCYSTEINE [Suspect]
     Active Substance: CARBOCYSTEINE
     Indication: Product used for unknown indication
     Dosage: 750 MG, QD
     Route: 048
     Dates: start: 20100917
  92. CARBOCYSTEINE [Suspect]
     Active Substance: CARBOCYSTEINE
     Dosage: 750 MILLIGRAM, ONCE A DAY;
  93. CARBOCYSTEINE [Suspect]
     Active Substance: CARBOCYSTEINE
     Dosage: 750 MILLIGRAM, ONCE A DAY;
  94. CARBAMAZEPINE [Suspect]
     Active Substance: CARBAMAZEPINE
     Indication: Product used for unknown indication
     Dosage: 750 MG, QD
     Route: 048
  95. CARBAMAZEPINE [Suspect]
     Active Substance: CARBAMAZEPINE
     Dosage: 750 MG, QD
     Route: 048
  96. CARBAMAZEPINE [Suspect]
     Active Substance: CARBAMAZEPINE
     Dosage: 750 MG, QD
     Route: 048
  97. OMEPRAZOLE [Suspect]
     Active Substance: OMEPRAZOLE
     Dosage: 20 MG, BID (20 MG, Q12H (20 MG, BID)
  98. OMEPRAZOLE [Suspect]
     Active Substance: OMEPRAZOLE
     Dosage: 12 MG, BID
  99. SOLIFENACIN [Suspect]
     Active Substance: SOLIFENACIN
     Indication: Product used for unknown indication
     Dosage: 82 DF
     Route: 048
  100. MODERNA COVID-19 VACCINE [Suspect]
     Active Substance: ELASOMERAN
     Indication: COVID-19 prophylaxis
     Dosage: 1 DF, TOTAL
     Route: 030
     Dates: start: 20211204, end: 20211204
  101. CLOZARIL [Suspect]
     Active Substance: CLOZAPINE
     Indication: Schizophrenia
     Dosage: UNK
     Route: 048
  102. CLOZARIL [Suspect]
     Active Substance: CLOZAPINE
     Indication: Schizophrenia
     Dosage: 20 MG
     Route: 048
  103. CLOZARIL [Suspect]
     Active Substance: CLOZAPINE
     Dosage: 400 MG;
     Route: 048
     Dates: start: 20200403
  104. CLOZARIL [Suspect]
     Active Substance: CLOZAPINE
     Dosage: 40 MG, BID
     Route: 048
  105. CLOZARIL [Suspect]
     Active Substance: CLOZAPINE
     Dosage: 400 MG
     Route: 048
     Dates: start: 20200403
  106. CLOZARIL [Suspect]
     Active Substance: CLOZAPINE
     Dosage: 8 MG, QD
     Route: 048
     Dates: start: 20200521, end: 202005
  107. CLOZARIL [Suspect]
     Active Substance: CLOZAPINE
     Dosage: 8 MG, QD
     Route: 048
     Dates: start: 202005
  108. CLOZARIL [Suspect]
     Active Substance: CLOZAPINE
     Dosage: 400 MG
     Route: 048
     Dates: start: 20200403
  109. CLOZARIL [Suspect]
     Active Substance: CLOZAPINE
     Dosage: 400 MG
     Route: 048
     Dates: start: 20200403
  110. CLOZARIL [Suspect]
     Active Substance: CLOZAPINE
     Dosage: 8 MG, QD
     Route: 048
     Dates: start: 20200521, end: 202005
  111. CLOZARIL [Suspect]
     Active Substance: CLOZAPINE
     Dosage: 8 MG
     Route: 048
     Dates: start: 202005
  112. CLOZARIL [Suspect]
     Active Substance: CLOZAPINE
     Dosage: 20 MG, BID
     Route: 048
  113. CLOZARIL [Suspect]
     Active Substance: CLOZAPINE
     Dosage: 20 MG, BID
     Route: 048
  114. CLOZARIL [Suspect]
     Active Substance: CLOZAPINE
     Dosage: 20 MG, BID
     Route: 048
  115. CLOZARIL [Suspect]
     Active Substance: CLOZAPINE
     Dosage: 400 MG ;
     Route: 048
     Dates: start: 20090403
  116. CLOZARIL [Suspect]
     Active Substance: CLOZAPINE
     Dosage: 20 MG, BID
     Route: 048
  117. ETANERCEPT [Suspect]
     Active Substance: ETANERCEPT
     Indication: Rheumatoid arthritis
     Dosage: 50 MG, QD
     Route: 042
     Dates: start: 20100917
  118. METHOTREXATE SODIUM [Suspect]
     Active Substance: METHOTREXATE SODIUM
     Indication: Rheumatoid arthritis
     Dosage: 17.5 MG, WEEKLY
     Route: 048
     Dates: start: 20100917
  119. METHOTREXATE SODIUM [Suspect]
     Active Substance: METHOTREXATE SODIUM
     Dosage: 18 MG, QW
     Route: 048
     Dates: start: 20100917
  120. GUANIDINE [Suspect]
     Active Substance: GUANIDINE
     Indication: Depression
     Dosage: 750 MG, QD
     Route: 048
  121. GUANIDINE [Suspect]
     Active Substance: GUANIDINE
     Indication: Abdominal discomfort
     Dosage: 750 MILLIGRAM, ONCE A DAY
     Route: 048
  122. GUANIDINE [Suspect]
     Active Substance: GUANIDINE
     Indication: Product used for unknown indication
     Dosage: 750 MILLIGRAM, ONCE A DAY
     Route: 048
  123. DITIOCARB [Suspect]
     Active Substance: DITIOCARB
     Indication: Product used for unknown indication
     Dosage: 750 MG
  124. DITIOCARB [Suspect]
     Active Substance: DITIOCARB
     Indication: Abdominal discomfort
     Dosage: 750 MG, UNK;
  125. DITIOCARB [Suspect]
     Active Substance: DITIOCARB
     Indication: Abdominal discomfort
     Dosage: 750 MG, UNK;
  126. PHYLLOCONTIN [Suspect]
     Active Substance: AMINOPHYLLINE
     Indication: Product used for unknown indication
     Dosage: 400 MG, DAILY, QD
     Dates: start: 20100917
  127. ENBREL [Suspect]
     Active Substance: ETANERCEPT
     Indication: Rheumatoid arthritis
     Dosage: 50 MG, WEEKLY
     Route: 040
     Dates: start: 20100917
  128. CIPROFLOXACIN HYDROCHLORIDE [Suspect]
     Active Substance: CIPROFLOXACIN HYDROCHLORIDE
     Indication: Abdominal discomfort
     Dosage: 1000 MG, QD
     Route: 048
     Dates: start: 20100917
  129. CIPROFLOXACIN HYDROCHLORIDE [Suspect]
     Active Substance: CIPROFLOXACIN HYDROCHLORIDE
     Indication: Product used for unknown indication
  130. CIPROFLOXACIN HYDROCHLORIDE [Suspect]
     Active Substance: CIPROFLOXACIN HYDROCHLORIDE
     Indication: Rheumatoid arthritis
  131. VENLAFAXINE HYDROCHLORIDE [Suspect]
     Active Substance: VENLAFAXINE HYDROCHLORIDE
     Indication: Depression
     Dosage: UNK
  132. CIPROFLOXACIN [Suspect]
     Active Substance: CIPROFLOXACIN
     Indication: Depression
     Dosage: 1000 MG, QD
     Route: 048
     Dates: start: 20100917
  133. CIPROFLOXACIN [Suspect]
     Active Substance: CIPROFLOXACIN
     Indication: Rheumatoid arthritis
     Route: 048
  134. CIPROFLOXACIN [Suspect]
     Active Substance: CIPROFLOXACIN
     Indication: Abdominal discomfort
  135. CIPROFLOXACIN [Suspect]
     Active Substance: CIPROFLOXACIN
     Indication: Abdominal discomfort
     Route: 048
  136. CIPROFLOXACIN [Suspect]
     Active Substance: CIPROFLOXACIN
  137. ACTIVATED CHARCOAL [Concomitant]
     Active Substance: ACTIVATED CHARCOAL
     Indication: Product used for unknown indication
     Dosage: 750 MG
  138. ACTIVATED CHARCOAL [Concomitant]
     Active Substance: ACTIVATED CHARCOAL
     Dosage: 750 MG
  139. BENDROFLUMETHIAZIDE [Concomitant]
     Active Substance: BENDROFLUMETHIAZIDE
     Indication: Depression
     Dosage: UNK
  140. BENDROFLUMETHIAZIDE [Concomitant]
     Active Substance: BENDROFLUMETHIAZIDE
     Indication: Pituitary tumour
     Dosage: UNK
  141. BENDROFLUMETHIAZIDE [Concomitant]
     Active Substance: BENDROFLUMETHIAZIDE
     Indication: Empty sella syndrome
  142. CETIRIZINE HYDROCHLORIDE [Concomitant]
     Active Substance: CETIRIZINE HYDROCHLORIDE
     Indication: Abdominal discomfort
     Dosage: UNK
     Route: 065
  143. CABERGOLINE [Concomitant]
     Active Substance: CABERGOLINE
     Indication: Empty sella syndrome
     Dosage: UNK
  144. CABERGOLINE [Concomitant]
     Active Substance: CABERGOLINE
     Indication: Pituitary tumour
  145. ORUVAIL [Concomitant]
     Active Substance: KETOPROFEN
     Indication: Empty sella syndrome
     Dosage: UNK
  146. ORUVAIL [Concomitant]
     Active Substance: KETOPROFEN
     Dosage: UNK
  147. LEVOTHYROXINE [Concomitant]
     Active Substance: LEVOTHYROXINE
     Indication: Depression
     Dosage: UNK
  148. LEVOTHYROXINE [Concomitant]
     Active Substance: LEVOTHYROXINE
     Indication: Abdominal discomfort
  149. EZETIMIBE [Concomitant]
     Active Substance: EZETIMIBE
     Indication: Product used for unknown indication
     Dosage: UNK
  150. CHARCOAL ACTIVATED [Concomitant]
     Active Substance: ACTIVATED CHARCOAL
     Indication: Product used for unknown indication
     Dosage: 750 MG
  151. CETIRIZINE [Concomitant]
     Active Substance: CETIRIZINE HYDROCHLORIDE
     Indication: Abdominal discomfort
  152. FOLIC ACID [Concomitant]
     Active Substance: FOLIC ACID
     Dosage: 5 MG
     Route: 048
  153. BECLOMETHASONE DIPROPIONATE [Concomitant]
     Active Substance: BECLOMETHASONE DIPROPIONATE
     Indication: Product used for unknown indication
     Dosage: 146 DF
     Dates: start: 20190102
  154. DULOXETINE [Concomitant]
     Active Substance: DULOXETINE
     Dosage: UNK

REACTIONS (39)
  - COVID-19 [Fatal]
  - Lung neoplasm malignant [Fatal]
  - Schizophrenia [Fatal]
  - Radiation inflammation [Fatal]
  - Knee arthroplasty [Fatal]
  - Condition aggravated [Fatal]
  - Lower respiratory tract infection [Fatal]
  - Pulmonary pain [Fatal]
  - Off label use [Fatal]
  - Abdominal discomfort [Fatal]
  - Rash [Fatal]
  - Overdose [Fatal]
  - Intentional product misuse [Fatal]
  - Product dose omission issue [Fatal]
  - Arthropathy [Fatal]
  - Lung neoplasm malignant [Fatal]
  - Drug abuse [Fatal]
  - Inflammation [Fatal]
  - Genital ulceration [Recovered/Resolved]
  - Blood potassium decreased [Unknown]
  - Abdominal pain upper [Recovering/Resolving]
  - Illness [Recovering/Resolving]
  - Oral pain [Recovering/Resolving]
  - Nightmare [Not Recovered/Not Resolved]
  - Diarrhoea [Recovered/Resolved]
  - Food poisoning [Not Recovered/Not Resolved]
  - Dementia [Unknown]
  - Irritable bowel syndrome [Unknown]
  - Condition aggravated [Unknown]
  - Peripheral swelling [Unknown]
  - Feeling abnormal [Unknown]
  - Drug interaction [Unknown]
  - Genital pain [Recovered/Resolved]
  - Gastrointestinal pain [Not Recovered/Not Resolved]
  - Abdominal pain [Recovered/Resolved]
  - Malaise [Unknown]
  - Contusion [Not Recovered/Not Resolved]
  - Vomiting [Unknown]
  - Mucosal inflammation [Recovered/Resolved]

NARRATIVE: CASE EVENT DATE: 20190121
